FAERS Safety Report 14711017 (Version 1)
Quarter: 2018Q2

REPORT INFORMATION
  Report Type: Spontaneous
  Country: FR (occurrence: FR)
  Receive Date: 20180403
  Receipt Date: 20180403
  Transmission Date: 20180711
  Serious: Yes (Death)
  Sender: FDA-Public Use
  Company Number: PHHY2018FR058060

PATIENT
  Age: 56 Year
  Sex: Female

DRUGS (7)
  1. DEXTROMETHORFAN [Suspect]
     Active Substance: DEXTROMETHORPHAN
     Indication: POISONING DELIBERATE
     Dosage: UNK
     Route: 048
  2. METOPROLOL TARTRATE. [Suspect]
     Active Substance: METOPROLOL TARTRATE
     Indication: POISONING DELIBERATE
     Dosage: UNK
     Route: 048
  3. OXYCODONE [Suspect]
     Active Substance: OXYCODONE
     Indication: POISONING DELIBERATE
     Dosage: UNK
     Route: 048
  4. NITRAZEPAM [Suspect]
     Active Substance: NITRAZEPAM
     Indication: POISONING DELIBERATE
     Dosage: UNK
     Route: 048
  5. BROMAZEPAM [Suspect]
     Active Substance: BROMAZEPAM
     Indication: POISONING DELIBERATE
     Dosage: UNK
     Route: 048
  6. MIRTAZAPINE. [Suspect]
     Active Substance: MIRTAZAPINE
     Indication: POISONING DELIBERATE
     Dosage: UNK
     Route: 048
  7. ALIMEMAZINE [Suspect]
     Active Substance: TRIMEPRAZINE
     Indication: POISONING DELIBERATE
     Dosage: UNK
     Route: 048

REACTIONS (1)
  - Cardio-respiratory arrest [Fatal]

NARRATIVE: CASE EVENT DATE: 20170426
